FAERS Safety Report 18774407 (Version 1)
Quarter: 2021Q1

REPORT INFORMATION
  Report Type: Report from Study
  Country: US (occurrence: US)
  Receive Date: 20210122
  Receipt Date: 20210122
  Transmission Date: 20210419
  Serious: Yes (Other)
  Sender: FDA-Public Use
  Company Number: US-MYLANLABS-2021M1003915

PATIENT

DRUGS (4)
  1. TOPOTECAN [Suspect]
     Active Substance: TOPOTECAN HYDROCHLORIDE
     Indication: NEOPLASM MALIGNANT
     Dosage: 0.75 MG/ M2/DOSE ON DAYS 1?5 OF 21 DAY CYCLE (ADMINISTERED AT DOSE LEVEL 1 AS WELL AT DOSE LEVEL 2)
  2. CRIZOTINIB [Suspect]
     Active Substance: CRIZOTINIB
     Indication: NEOPLASM MALIGNANT
     Dosage: 165 MILLIGRAM/SQ. METER ON DAYS 1?21 OF 21 DAY CYCLE (AT DOSE LEVEL 1)
     Route: 048
  3. CYCLOPHOSPHAMIDE. [Suspect]
     Active Substance: CYCLOPHOSPHAMIDE
     Indication: NEOPLASM MALIGNANT
     Dosage: 50 MG/M2/DOSE ON DAYS 1?5 OF 21 CYCLE (ADMINISTERED AT DOSE LEVEL 1 AS WELL AT DOSE LEVEL 2)
  4. CRIZOTINIB [Suspect]
     Active Substance: CRIZOTINIB
     Dosage: 215 MILLIGRAM/SQ. METER ON DAYS 1?21 OF 21 DAY CYCLE (AT DOSE LEVEL 2)
     Route: 048

REACTIONS (2)
  - Nausea [Unknown]
  - Dehydration [Unknown]
